FAERS Safety Report 25701285 (Version 1)
Quarter: 2025Q3

REPORT INFORMATION
  Report Type: Spontaneous
  Country: US (occurrence: US)
  Receive Date: 20250819
  Receipt Date: 20250819
  Transmission Date: 20251021
  Serious: No
  Sender: BIOCRYST PHARMACEUTICALS
  Company Number: US-BIOCRYST PHARMACEUTICALS, INC.-2025BCR00970

PATIENT

DRUGS (1)
  1. ORLADEYO [Interacting]
     Active Substance: BEROTRALSTAT HYDROCHLORIDE

REACTIONS (3)
  - Weight decreased [Recovering/Resolving]
  - Rash [Recovering/Resolving]
  - Exposure via breast milk [Recovering/Resolving]
